FAERS Safety Report 7992026-6 (Version None)
Quarter: 2011Q4

REPORT INFORMATION
  Report Type: 
  Country: None (occurrence: None)
  Receive Date: 20111219
  Receipt Date: 20111019
  Transmission Date: 20120403
  Serious: No
  Sender: FDA-Public Use
  Company Number: US-ASTRAZENECA-2011SE63281

PATIENT
  Age: 61 Year
  Sex: Female

DRUGS (1)
  1. CRESTOR [Suspect]
     Route: 048

REACTIONS (3)
  - BACK PAIN [None]
  - MALAISE [None]
  - DIABETES MELLITUS [None]
